FAERS Safety Report 4432399-4 (Version None)
Quarter: 2004Q3

REPORT INFORMATION
  Report Type: 
  Country: None (occurrence: None)
  Receive Date: 20040820
  Receipt Date: 20040810
  Transmission Date: 20050211
  Serious: Yes (Other)
  Sender: FDA-Public Use
  Company Number: STA-AE-04-MTX-357

PATIENT
  Age: 46 Year
  Sex: Female

DRUGS (3)
  1. METHOTREXATE [Suspect]
     Indication: DERMATOMYOSITIS
     Dosage: ORAL
     Route: 048
  2. MYCOPHENOLATE MOFETIL (MYCOPHENOLATE MOFETIL) [Suspect]
     Dosage: ORAL
     Route: 048
  3. PREDNISONE TAB [Concomitant]

REACTIONS (2)
  - CENTRAL NERVOUS SYSTEM LYMPHOMA [None]
  - EPSTEIN-BARR VIRUS INFECTION [None]
